FAERS Safety Report 7290153 (Version 6)
Quarter: 2012Q4

REPORT INFORMATION
  Report Type: 
  Country: IE (occurrence: IE)
  Receive Date: 20100223
  Receipt Date: 20121029
  Transmission Date: 20130627
  Serious: Yes (Hospitalization, Other)
  Sender: FDA-Public Use
  Company Number: PHHY2009IE60092

PATIENT
  Age: 40 Year
  Sex: Female

DRUGS (8)
  1. CLOZARIL [Suspect]
     Indication: SCHIZOPHRENIA
     Dosage: UNK UKN, UNK
     Route: 048
     Dates: start: 20080128
  2. CLOZARIL [Suspect]
     Indication: SCHIZOAFFECTIVE DISORDER
     Dosage: 750 mg, QD
     Dates: start: 20091215, end: 20100422
  3. VALPROATE SODIUM [Concomitant]
     Dosage: UNK UKN, UNK
  4. FLUPHENAZINE [Concomitant]
  5. OLANZAPINE [Concomitant]
  6. LITHIUM [Concomitant]
     Dosage: UNK UKN, UNK
  7. EPILIM CHRONO [Concomitant]
     Indication: SCHIZOAFFECTIVE DISORDER
     Dosage: UNK UKN, UNK
     Route: 048
     Dates: start: 20071101
  8. EPILIM CHRONO [Concomitant]
     Dosage: 1.7 g, QD
     Dates: start: 20091215

REACTIONS (6)
  - Psychotic disorder [Unknown]
  - White blood cell count decreased [Recovered/Resolved]
  - Neutropenia [Recovered/Resolved]
  - Quality of life decreased [Unknown]
  - Feeling cold [Unknown]
  - Drug ineffective [Unknown]
